FAERS Safety Report 6537082-7 (Version None)
Quarter: 2010Q1

REPORT INFORMATION
  Report Type: 
  Country: None (occurrence: None)
  Receive Date: 20100114
  Receipt Date: 20100106
  Transmission Date: 20100710
  Serious: Yes (Other)
  Sender: FDA-Public Use
  Company Number: BR-ASTRAZENECA-2010SE00940

PATIENT
  Age: 75 Year
  Sex: Female
  Weight: 70 kg

DRUGS (4)
  1. ATACAND HCT [Suspect]
     Indication: HYPERTENSION
     Dosage: 16/12.5 MG DAILY
     Route: 048
     Dates: start: 20060101, end: 20091201
  2. UNKNOWN [Concomitant]
     Indication: BLOOD CHOLESTEROL ABNORMAL
     Dosage: DAILY
     Route: 048
     Dates: start: 20090101
  3. SERTRALINE HCL [Concomitant]
     Indication: MYOCARDIAL INFARCTION
     Dosage: DAILY
     Route: 048
     Dates: start: 19840101
  4. GLIFAGE [Concomitant]
     Indication: DIABETES MELLITUS
     Dosage: DAILY
     Route: 048
     Dates: start: 20090101

REACTIONS (4)
  - DIABETES MELLITUS [None]
  - LABILE BLOOD PRESSURE [None]
  - SOMNOLENCE [None]
  - UPPER LIMB FRACTURE [None]
